FAERS Safety Report 5138051-4 (Version None)
Quarter: 2006Q4

REPORT INFORMATION
  Report Type: 
  Country: None (occurrence: None)
  Receive Date: 20061030
  Receipt Date: 20060403
  Transmission Date: 20070319
  Serious: No
  Sender: FDA-Public Use
  Company Number: US-GLAXOSMITHKLINE-A0600906A

PATIENT
  Age: 12 Year
  Sex: Male
  Weight: 34.7 kg

DRUGS (4)
  1. ADVAIR HFA [Suspect]
     Indication: DRUG USE FOR UNKNOWN INDICATION
     Route: 055
     Dates: start: 20021001
  2. ALBUTEROL [Concomitant]
     Indication: ASTHMA
     Route: 055
  3. DALLERGY [Concomitant]
     Dosage: .5TAB TWICE PER DAY
     Route: 048
  4. VITAMINS [Concomitant]
     Route: 048

REACTIONS (1)
  - GROWTH RETARDATION [None]
